FAERS Safety Report 4695100-5 (Version None)
Quarter: 2005Q2

REPORT INFORMATION
  Report Type: 
  Country: None (occurrence: None)
  Receive Date: 20050620
  Receipt Date: 20050311
  Transmission Date: 20051028
  Serious: Yes (Other)
  Sender: FDA-Public Use
  Company Number: US-MERCK-0503USA02606

PATIENT
  Age: 53 Year
  Sex: Female
  Weight: 86 kg

DRUGS (6)
  1. VIOXX [Suspect]
     Indication: ARTHRITIS
     Route: 048
     Dates: start: 20030101, end: 20040901
  2. PAXIL [Concomitant]
     Indication: DEPRESSION
     Route: 065
     Dates: start: 20010101
  3. CYCLOBENZAPRINE HYDROCHLORIDE [Concomitant]
     Indication: MUSCLE SPASMS
     Route: 065
     Dates: start: 20010101
  4. DICYCLOMINE HYDROCHLORIDE [Concomitant]
     Indication: INTESTINAL FUNCTIONAL DISORDER
     Route: 065
  5. PROTONIX [Concomitant]
     Route: 065
  6. DITROPAN [Concomitant]
     Indication: CARDIAC DISORDER
     Route: 065
     Dates: start: 20020101

REACTIONS (3)
  - BLOOD CHOLESTEROL INCREASED [None]
  - CEREBROVASCULAR ACCIDENT [None]
  - HYPERTENSION [None]
